FAERS Safety Report 6267019-X (Version None)
Quarter: 2009Q3

REPORT INFORMATION
  Report Type: 
  Country: None (occurrence: None)
  Receive Date: 20090714
  Receipt Date: 20090331
  Transmission Date: 20100115
  Serious: No
  Sender: FDA-Public Use
  Company Number: US-BAYER-200917177NA

PATIENT
  Age: 42 Year
  Sex: Female

DRUGS (2)
  1. YAZ [Suspect]
     Indication: OVARIAN CYST
     Route: 048
     Dates: end: 20090320
  2. NSAIDS NOS [Concomitant]

REACTIONS (4)
  - BACK INJURY [None]
  - NO ADVERSE EVENT [None]
  - PAIN IN EXTREMITY [None]
  - WITHDRAWAL BLEED [None]
